FAERS Safety Report 5456817-8 (Version None)
Quarter: 2007Q3

REPORT INFORMATION
  Report Type: 
  Country: None (occurrence: None)
  Receive Date: 20070918
  Receipt Date: 20070912
  Transmission Date: 20080115
  Serious: Yes (Hospitalization)
  Sender: FDA-Public Use
  Company Number: HQWYE552315AUG07

PATIENT
  Sex: Male
  Weight: 100.79 kg

DRUGS (4)
  1. TORISEL [Suspect]
     Indication: RENAL CELL CARCINOMA STAGE UNSPECIFIED
     Dosage: DOSE NOT SPECIFIED, FREQUENCY, ONCE WEEKLY, ADMINISTERED 5 TIMES
     Route: 041
     Dates: start: 20070101
  2. OXYCODONE HCL [Concomitant]
     Dosage: TWO 5 MG WHENEVER NECESSARY
  3. OXYCODONE HYDROCHLORIDE [Concomitant]
  4. ZOLOFT [Concomitant]
     Dosage: 250 MG DAILY
     Route: 065

REACTIONS (7)
  - ABDOMINAL PAIN LOWER [None]
  - CHEST PAIN [None]
  - DYSPNOEA [None]
  - ERYTHEMA [None]
  - FEELING HOT [None]
  - FLUSHING [None]
  - STOMACH DISCOMFORT [None]
